FAERS Safety Report 7815999-0 (Version None)
Quarter: 2011Q4

REPORT INFORMATION
  Report Type: 
  Country: None (occurrence: None)
  Receive Date: 20111014
  Receipt Date: 20110923
  Transmission Date: 20120403
  Serious: Yes (Other)
  Sender: FDA-Public Use
  Company Number: BR-ROCHE-1000210

PATIENT
  Age: 15 Year
  Sex: Male

DRUGS (2)
  1. VALPROIC ACID [Interacting]
     Indication: CONVULSION
  2. ISOTRETINOIN [Suspect]
     Indication: PRODUCT USED FOR UNKNOWN INDICATION
     Route: 048
     Dates: start: 20110801

REACTIONS (2)
  - CONVULSION [None]
  - DRUG INTERACTION [None]
